FAERS Safety Report 17056038 (Version 1)
Quarter: 2019Q4

REPORT INFORMATION
  Report Type: Spontaneous
  Country: IT (occurrence: IT)
  Receive Date: 20191121
  Receipt Date: 20191121
  Transmission Date: 20200122
  Serious: Yes (Hospitalization, Other)
  Sender: FDA-Public Use
  Company Number: IT-BRISTOL-MYERS SQUIBB COMPANY-BMS-2019-107948

PATIENT
  Age: 76 Year
  Weight: 49 kg

DRUGS (1)
  1. ORENCIA [Suspect]
     Active Substance: ABATACEPT
     Indication: RHEUMATOID ARTHRITIS
     Dosage: 125 MILLIGRAM, QWK
     Route: 058
     Dates: start: 20121119, end: 20190406

REACTIONS (3)
  - Septic shock [Recovered/Resolved]
  - Acute respiratory failure [Recovered/Resolved]
  - Pneumonitis [Recovered/Resolved]
